FAERS Safety Report 7409218-7 (Version None)
Quarter: 2011Q2

REPORT INFORMATION
  Report Type: 
  Country: None (occurrence: None)
  Receive Date: 20110412
  Receipt Date: 20110407
  Transmission Date: 20111010
  Serious: Yes (Death, Hospitalization)
  Sender: FDA-Public Use
  Company Number: A0776708A

PATIENT
  Age: 66 Year
  Sex: Male
  Weight: 137.7 kg

DRUGS (10)
  1. ROCALTROL [Concomitant]
  2. PRILOSEC [Concomitant]
  3. AVANDIA [Suspect]
     Dosage: 8MG UNKNOWN
     Route: 048
     Dates: start: 20030501, end: 20060210
  4. LIPITOR [Concomitant]
  5. GLUCOTROL [Concomitant]
  6. NEORAL [Concomitant]
  7. ASPIRIN [Concomitant]
  8. PREDNISONE [Concomitant]
  9. ALTACE [Concomitant]
  10. CELLCEPT [Concomitant]

REACTIONS (5)
  - DEATH [None]
  - CEREBROVASCULAR ACCIDENT [None]
  - ATRIAL FIBRILLATION [None]
  - WEIGHT INCREASED [None]
  - CARDIAC FAILURE CONGESTIVE [None]
